FAERS Safety Report 20052123 (Version 1)
Quarter: 2021Q4

REPORT INFORMATION
  Report Type: Spontaneous
  Country: US (occurrence: US)
  Receive Date: 20211110
  Receipt Date: 20211110
  Transmission Date: 20220303
  Serious: Yes (Death, Other)
  Sender: FDA-Public Use
  Company Number: US-CADILA HEALTHCARE LIMITED-US-ZYDUS-071203

PATIENT

DRUGS (1)
  1. METFORMIN [Suspect]
     Active Substance: METFORMIN HYDROCHLORIDE
     Indication: Product used for unknown indication
     Dosage: UNK
     Route: 065

REACTIONS (9)
  - Toxicity to various agents [Fatal]
  - Gastrointestinal haemorrhage [Unknown]
  - Leukocytosis [Unknown]
  - Tachycardia [Unknown]
  - Agitation [Unknown]
  - Hypotension [Unknown]
  - Metabolic acidosis [Unknown]
  - Anion gap [Unknown]
  - Acute kidney injury [Unknown]
